FAERS Safety Report 6170618-7 (Version None)
Quarter: 2009Q2

REPORT INFORMATION
  Report Type: 
  Country: None (occurrence: None)
  Receive Date: 20090428
  Receipt Date: 20090421
  Transmission Date: 20091009
  Serious: Yes (Hospitalization)
  Sender: FDA-Public Use
  Company Number: US-WYE-H09045509

PATIENT
  Age: 74 Year
  Sex: Female

DRUGS (16)
  1. TEMSIROLIMUS [Suspect]
     Indication: MULTIPLE MYELOMA
     Dosage: 15 MG DAYS 1, 8, 15, 22, 29 EVERY 35
     Route: 065
     Dates: start: 20090206, end: 20090417
  2. ATIVAN [Concomitant]
  3. COMPAZINE [Concomitant]
  4. GLYBURIDE [Concomitant]
  5. LISINOPRIL [Concomitant]
  6. METOPROLOL [Concomitant]
  7. MIRALAX [Concomitant]
  8. NEUPOGEN [Concomitant]
  9. OXYCODONE [Concomitant]
  10. OXYCONTIN [Concomitant]
  11. PERIDEX [Concomitant]
  12. TYLENOL [Concomitant]
  13. VALTREX [Concomitant]
  14. ZOLOFT [Concomitant]
  15. AZITHROMYCIN [Concomitant]
  16. BORTEZOMIB [Suspect]
     Indication: MULTIPLE MYELOMA
     Dosage: 1.3 MG/M^2 DAYS 1, 8, 15, 22 EVERY 35
     Route: 065
     Dates: start: 20090206, end: 20090417

REACTIONS (3)
  - EPISTAXIS [None]
  - NASOPHARYNGITIS [None]
  - NEUTROPENIA [None]
